FAERS Safety Report 16845961 (Version 2)
Quarter: 2021Q2

REPORT INFORMATION
  Report Type: Spontaneous
  Country: BE (occurrence: BE)
  Receive Date: 20190924
  Receipt Date: 20210625
  Transmission Date: 20210716
  Serious: Yes (Other)
  Sender: FDA-Public Use
  Company Number: BE-ASTRAZENECA-2019SF31911

PATIENT
  Age: 60 Year
  Sex: Male

DRUGS (3)
  1. TRASTUZUMAB. [Concomitant]
     Active Substance: TRASTUZUMAB
     Indication: LUNG ADENOCARCINOMA
     Dosage: 2 MG/KG WEEKLY
  2. GEFITINIB. [Suspect]
     Active Substance: GEFITINIB
     Indication: LUNG ADENOCARCINOMA
     Route: 048
  3. TAGRISSO [Suspect]
     Active Substance: OSIMERTINIB
     Indication: LUNG ADENOCARCINOMA
     Route: 048

REACTIONS (5)
  - Off label use [Unknown]
  - Acquired gene mutation [Recovered/Resolved]
  - HER2 gene amplification [Recovered/Resolved]
  - Drug resistance [Unknown]
  - EGFR gene mutation [Unknown]
